FAERS Safety Report 26122137 (Version 1)
Quarter: 2025Q4

REPORT INFORMATION
  Report Type: Spontaneous
  Country: JP (occurrence: JP)
  Receive Date: 20251204
  Receipt Date: 20251204
  Transmission Date: 20260117
  Serious: Yes (Other)
  Sender: PFIZER
  Company Number: JP-PFIZER INC-PV202500139944

PATIENT

DRUGS (1)
  1. LORBRENA [Suspect]
     Active Substance: LORLATINIB
     Indication: Non-small cell lung cancer recurrent
     Dosage: 100 MG
     Route: 048

REACTIONS (3)
  - Hallucination [Unknown]
  - Hyperlipidaemia [Unknown]
  - Hypertriglyceridaemia [Unknown]
